FAERS Safety Report 13655184 (Version 5)
Quarter: 2020Q4

REPORT INFORMATION
  Report Type: Spontaneous
  Country: US (occurrence: US)
  Receive Date: 20170615
  Receipt Date: 20201105
  Transmission Date: 20210113
  Serious: Yes (Other)
  Sender: FDA-Public Use
  Company Number: PHEH2017US018260

PATIENT
  Age: 20 Year
  Sex: Female

DRUGS (2)
  1. ZOFRAN [Suspect]
     Active Substance: ONDANSETRON HYDROCHLORIDE
     Indication: PRODUCT USED FOR UNKNOWN INDICATION
     Dosage: 1 DF, TID, AS NEEDED
     Route: 048
  2. ONDANSETRON [Suspect]
     Active Substance: ONDANSETRON
     Indication: MORNING SICKNESS
     Dosage: 4 MG, PRN
     Route: 048
     Dates: start: 20150126, end: 201503

REACTIONS (21)
  - Pancreatitis [Unknown]
  - Obesity [Unknown]
  - Dizziness [Unknown]
  - Coeliac disease [Unknown]
  - Upper respiratory tract infection [Unknown]
  - Sinus congestion [Unknown]
  - Premature labour [Unknown]
  - Dehydration [Unknown]
  - Dyspnoea [Unknown]
  - Appendicitis [Unknown]
  - Maternal exposure during pregnancy [Unknown]
  - Skin papilloma [Unknown]
  - Premature delivery [Unknown]
  - Gastroenteritis viral [Unknown]
  - Genital herpes [Unknown]
  - Diarrhoea [Unknown]
  - Product use issue [Unknown]
  - Pyelocaliectasis [Unknown]
  - Emotional distress [Unknown]
  - Abdominal pain [Unknown]
  - Anaemia of pregnancy [Unknown]

NARRATIVE: CASE EVENT DATE: 20150804
